FAERS Safety Report 9285744 (Version 1)
Quarter: 2013Q2

REPORT INFORMATION
  Report Type: Spontaneous
  Country: US (occurrence: US)
  Receive Date: 20130513
  Receipt Date: 20130513
  Transmission Date: 20140414
  Serious: Yes (Death)
  Sender: FDA-Public Use
  Company Number: US-PFIZER INC-2013146414

PATIENT
  Age: 56 Year
  Sex: Male

DRUGS (2)
  1. EFFEXOR XR [Suspect]
     Dosage: 75 MG, UNK
  2. INSULIN [Concomitant]
     Dosage: UNK

REACTIONS (1)
  - Type 2 diabetes mellitus [Fatal]
